FAERS Safety Report 15772953 (Version 1)
Quarter: 2018Q4

REPORT INFORMATION
  Report Type: Spontaneous
  Country: CH (occurrence: CH)
  Receive Date: 20181228
  Receipt Date: 20181228
  Transmission Date: 20190205
  Serious: Yes (Other)
  Sender: FDA-Public Use
  Company Number: CH-ASTRAZENECA-2018SF70020

PATIENT
  Age: 59 Year
  Sex: Female

DRUGS (5)
  1. TAGRISSO [Suspect]
     Active Substance: OSIMERTINIB
     Indication: METASTASIS
     Route: 048
     Dates: start: 201703, end: 201712
  2. IRESSA [Suspect]
     Active Substance: GEFITINIB
     Indication: NON-SMALL CELL LUNG CANCER
     Dosage: 300.0MG UNKNOWN
     Route: 048
     Dates: start: 201609, end: 201610
  3. TAGRISSO [Suspect]
     Active Substance: OSIMERTINIB
     Indication: NON-SMALL CELL LUNG CANCER
     Route: 048
     Dates: start: 201703, end: 201712
  4. TAGRISSO [Suspect]
     Active Substance: OSIMERTINIB
     Indication: METASTASIS
     Dosage: 80 MG FIRST, THEN 160 MG AT DISEASE PROGRESS
     Route: 048
     Dates: start: 201803, end: 201808
  5. TAGRISSO [Suspect]
     Active Substance: OSIMERTINIB
     Indication: NON-SMALL CELL LUNG CANCER
     Dosage: 80 MG FIRST, THEN 160 MG AT DISEASE PROGRESS
     Route: 048
     Dates: start: 201803, end: 201808

REACTIONS (4)
  - Selective IgG subclass deficiency [Unknown]
  - Malignant neoplasm progression [Unknown]
  - Thyroid mass [Unknown]
  - Iron deficiency [Unknown]
